FAERS Safety Report 8838503 (Version 3)
Quarter: 2013Q1

REPORT INFORMATION
  Report Type: Spontaneous
  Country: US (occurrence: US)
  Receive Date: 20121012
  Receipt Date: 20130207
  Transmission Date: 20140127
  Serious: No
  Sender: FDA-Public Use
  Company Number: US-VERTEX PHARMACEUTICAL INC.-2012-022476

PATIENT
  Age: 49 Year
  Sex: Female

DRUGS (6)
  1. INCIVEK [Suspect]
     Indication: HEPATITIS C
     Dosage: 750 MG, TID
     Route: 048
     Dates: start: 20120823, end: 201211
  2. PEGASYS [Suspect]
     Indication: HEPATITIS C
     Dosage: 180 ?G, QW
     Route: 058
     Dates: start: 20120823, end: 201211
  3. RIBASPHERE [Suspect]
     Indication: HEPATITIS C
     Dosage: 600 MG, BID
     Route: 048
     Dates: start: 20120823, end: 201211
  4. AMBIEN [Concomitant]
     Indication: INSOMNIA
     Dosage: UNK, QD
     Route: 048
  5. LISINOPRIL [Concomitant]
     Dosage: UNK
  6. UNISOM [Concomitant]
     Indication: INSOMNIA
     Dosage: UNK

REACTIONS (12)
  - Dizziness [Not Recovered/Not Resolved]
  - Eye disorder [Unknown]
  - Joint swelling [Not Recovered/Not Resolved]
  - Pain in extremity [Not Recovered/Not Resolved]
  - Oral discomfort [Not Recovered/Not Resolved]
  - Local swelling [Not Recovered/Not Resolved]
  - Rash pruritic [Unknown]
  - Skin exfoliation [Not Recovered/Not Resolved]
  - Anaemia [Unknown]
  - Anal pruritus [Not Recovered/Not Resolved]
  - Haemorrhoids [Not Recovered/Not Resolved]
  - Anorectal discomfort [Not Recovered/Not Resolved]
